FAERS Safety Report 7062491-X (Version None)
Quarter: 2010Q4

REPORT INFORMATION
  Report Type: 
  Country: None (occurrence: None)
  Receive Date: 20101026
  Receipt Date: 20091120
  Transmission Date: 20110411
  Serious: No
  Sender: FDA-Public Use
  Company Number: US-PFIZER INC-2009281574

PATIENT
  Sex: Male

DRUGS (2)
  1. LIPITOR [Suspect]
  2. PLAVIX [Suspect]
     Indication: CEREBROVASCULAR ACCIDENT PROPHYLAXIS
     Dosage: 75 MG/DAY
     Route: 048
     Dates: start: 20050101, end: 20090101

REACTIONS (1)
  - CONTUSION [None]
